FAERS Safety Report 4278180-0 (Version None)
Quarter: 2004Q1

REPORT INFORMATION
  Report Type: 
  Country: None (occurrence: None)
  Receive Date: 20040120
  Receipt Date: 20040108
  Transmission Date: 20041129
  Serious: Yes (Hospitalization)
  Sender: FDA-Public Use
  Company Number: 04P-163-0246663-00

PATIENT
  Age: 56 Year
  Sex: Female

DRUGS (3)
  1. HUMIRA [Suspect]
     Dosage: 40 MG, SUBCUTANEOUS
     Route: 058
     Dates: start: 20040107
  2. METHOTREXATE [Concomitant]
  3. PREDNISONE [Concomitant]

REACTIONS (3)
  - CHEST PAIN [None]
  - DYSPNOEA [None]
  - TROPONIN INCREASED [None]
